FAERS Safety Report 11148474 (Version 1)
Quarter: 2015Q2

REPORT INFORMATION
  Report Type: Spontaneous
  Country: US (occurrence: US)
  Receive Date: 20150529
  Receipt Date: 20150529
  Transmission Date: 20150821
  Serious: Yes (Hospitalization)
  Sender: FDA-Public Use
  Company Number: US-LPDUSPRD-20150372

PATIENT
  Age: 51 Year
  Sex: Male

DRUGS (10)
  1. HYDRALAZINE HCL INJECTION, USP (0901-25) 20 MG/ML [Suspect]
     Active Substance: HYDRALAZINE HYDROCHLORIDE
     Dosage: 25 MG X 3
     Route: 065
     Dates: start: 2014
  2. RAPAMUNE [Suspect]
     Active Substance: SIROLIMUS
     Dosage: 1 MG EVERY 2 HR DAILY
     Route: 065
     Dates: start: 20120612
  3. SULFACETAMIDE [Concomitant]
     Active Substance: SULFACETAMIDE
     Dosage: DOSE NOT PROVIDED
     Dates: start: 20140314
  4. LABETALOL [Suspect]
     Active Substance: LABETALOL\LABETALOL HYDROCHLORIDE
     Dosage: 400 MG X 3
     Dates: start: 2004
  5. ALPRAZOLAM. [Suspect]
     Active Substance: ALPRAZOLAM
     Dosage: 1 MG AS NEEDED
     Dates: start: 2008
  6. KETOCONAZOLE. [Concomitant]
     Active Substance: KETOCONAZOLE
     Dosage: DOSE NOT PROVIDED
     Route: 065
     Dates: start: 20140314
  7. CLONIDINE HYDROCHLORIDE INJECTION, USP (0730-01) [Suspect]
     Active Substance: CLONIDINE HYDROCHLORIDE
     Dosage: .02 X 3
     Route: 065
     Dates: start: 2014
  8. ALLOPURINOL. [Suspect]
     Active Substance: ALLOPURINOL
     Dosage: 100 MG X1
     Dates: start: 2009
  9. COUMADIN [Suspect]
     Active Substance: WARFARIN SODIUM
     Dosage: 5 MG X 1 DAILY
     Dates: start: 2014
  10. PREDNISONE. [Suspect]
     Active Substance: PREDNISONE
     Dosage: 5 MG
     Dates: start: 2009

REACTIONS (2)
  - Lymphoma [Not Recovered/Not Resolved]
  - Neutropenia [Recovered/Resolved]

NARRATIVE: CASE EVENT DATE: 2014
